FAERS Safety Report 6219411-7 (Version None)
Quarter: 2009Q2

REPORT INFORMATION
  Report Type: 
  Country: None (occurrence: None)
  Receive Date: 20090605
  Receipt Date: 20090522
  Transmission Date: 20091009
  Serious: Yes (Other)
  Sender: FDA-Public Use
  Company Number: 090520-0000710

PATIENT
  Age: 29 Year
  Sex: Female

DRUGS (15)
  1. COGENTIN [Suspect]
     Indication: DEPRESSION
     Dosage: PO
     Route: 048
  2. COGENTIN [Suspect]
     Indication: SCHIZOPHRENIA
     Dosage: PO
     Route: 048
  3. CYCLOBENZAPRINE HCL [Suspect]
     Indication: DEPRESSION
  4. CYCLOBENZAPRINE HCL [Suspect]
     Indication: SCHIZOPHRENIA
  5. ESCITALOPRAM [Suspect]
     Indication: DEPRESSION
  6. ESCITALOPRAM [Suspect]
     Indication: SCHIZOPHRENIA
  7. QUETIAPINE FUMARATE [Suspect]
     Indication: DEPRESSION
  8. QUETIAPINE FUMARATE [Suspect]
     Indication: SCHIZOPHRENIA
  9. ARIPIPRAZOLE [Suspect]
     Indication: DEPRESSION
  10. ARIPIPRAZOLE [Suspect]
     Indication: SCHIZOPHRENIA
  11. HYDROXYZINE PAMOATE [Suspect]
     Indication: DEPRESSION
  12. HYDROXYZINE PAMOATE [Suspect]
     Indication: SCHIZOPHRENIA
  13. LAMOTRIGINE [Suspect]
     Indication: DEPRESSION
  14. LAMOTRIGINE [Suspect]
     Indication: SCHIZOPHRENIA
  15. ALBUTEROL [Concomitant]

REACTIONS (5)
  - ACCOMMODATION DISORDER [None]
  - DIPLOPIA [None]
  - PUPILLARY REFLEX IMPAIRED [None]
  - STRABISMUS [None]
  - VISUAL ACUITY REDUCED [None]
